FAERS Safety Report 5425968-6 (Version None)
Quarter: 2007Q3

REPORT INFORMATION
  Report Type: 
  Country: None (occurrence: None)
  Receive Date: 20070827
  Receipt Date: 20070814
  Transmission Date: 20080115
  Serious: Yes (Other)
  Sender: FDA-Public Use
  Company Number: US-NOVOPROD-266492

PATIENT
  Sex: Male

DRUGS (3)
  1. NOVOLIN R [Suspect]
     Indication: INSULIN-REQUIRING TYPE II DIABETES MELLITUS
     Dosage: UNKNOWN
     Route: 042
  2. GLUCOPHAGE [Concomitant]
     Indication: INSULIN-REQUIRING TYPE II DIABETES MELLITUS
  3. GLYBURIDE [Concomitant]
     Indication: INSULIN-REQUIRING TYPE II DIABETES MELLITUS

REACTIONS (1)
  - CARDIAC ARREST [None]
